FAERS Safety Report 14871264 (Version 1)
Quarter: 2018Q2

REPORT INFORMATION
  Report Type: Other
  Country: US (occurrence: US)
  Receive Date: 20180509
  Receipt Date: 20180509
  Transmission Date: 20180711
  Serious: Yes (Hospitalization)
  Sender: FDA-Public Use
  Company Number: US-ALKERMES INC.-ALK-2017-004258

PATIENT
  Age: 38 Year
  Sex: Male
  Weight: 88.65 kg

DRUGS (1)
  1. VIVITROL [Suspect]
     Active Substance: NALTREXONE
     Indication: DRUG ABUSE
     Dosage: 380 MG, QMO
     Route: 030
     Dates: start: 20170328, end: 20170428

REACTIONS (3)
  - Muscle abscess [Unknown]
  - Injection site reaction [Unknown]
  - Injection site abscess [Unknown]

NARRATIVE: CASE EVENT DATE: 20170512
